FAERS Safety Report 22647204 (Version 1)
Quarter: 2023Q2

REPORT INFORMATION
  Report Type: Report from Study
  Country: BE (occurrence: BE)
  Receive Date: 20230627
  Receipt Date: 20230627
  Transmission Date: 20230722
  Serious: Yes (Hospitalization)
  Sender: FDA-Public Use
  Company Number: BE-GENMAB-2023-00712

PATIENT
  Age: 90 Year
  Sex: Male
  Weight: 88.2 kg

DRUGS (42)
  1. EPCORITAMAB [Suspect]
     Active Substance: EPCORITAMAB
     Indication: Diffuse large B-cell lymphoma stage IV
     Dosage: PRIMING DOSE: 0.16 MILLIGRAM, SINGLE
     Route: 058
     Dates: start: 20230308, end: 20230308
  2. EPCORITAMAB [Suspect]
     Active Substance: EPCORITAMAB
     Dosage: INTERMEDIATE DOSE: 0.8 MILLIGRAM, SINGLE
     Route: 058
     Dates: start: 20230316, end: 20230316
  3. EPCORITAMAB [Suspect]
     Active Substance: EPCORITAMAB
     Dosage: FULL DOSE: 48 MILLIGRAM, WEEKLY
     Route: 058
     Dates: start: 20230323, end: 20230406
  4. EPCORITAMAB [Suspect]
     Active Substance: EPCORITAMAB
     Dosage: FULL DOSE: 48 MILLIGRAM, WEEKLY
     Route: 058
     Dates: start: 20220512, end: 20220512
  5. DEXAMETHASONE [Concomitant]
     Active Substance: DEXAMETHASONE
     Indication: Prophylaxis
     Dosage: 4 MILLIGRAM, QD
     Route: 048
     Dates: start: 20230308, end: 20230311
  6. DEXAMETHASONE [Concomitant]
     Active Substance: DEXAMETHASONE
     Dosage: 16 MILLIGRAM, QD
     Route: 048
     Dates: start: 20230316, end: 20230319
  7. DEXAMETHASONE [Concomitant]
     Active Substance: DEXAMETHASONE
     Dosage: 16 MILLIGRAM, SINGLE
     Route: 048
     Dates: start: 20230323, end: 20230323
  8. DEXAMETHASONE [Concomitant]
     Active Substance: DEXAMETHASONE
     Dosage: 16 MILLIGRAM, QD
     Route: 048
     Dates: start: 20230330, end: 20230402
  9. DEXAMETHASONE [Concomitant]
     Active Substance: DEXAMETHASONE
     Dosage: 16 MILLIGRAM, QD
     Route: 048
     Dates: start: 20230406, end: 20230409
  10. DEXAMETHASONE [Concomitant]
     Active Substance: DEXAMETHASONE
     Dosage: 16 MILLIGRAM, QD
     Route: 048
     Dates: start: 20230512, end: 20230515
  11. ZYRTEC [Concomitant]
     Active Substance: CETIRIZINE HYDROCHLORIDE
     Indication: Premedication
     Dosage: 10 MILLIGRAM, SINGLE
     Route: 048
     Dates: start: 20230406, end: 20230406
  12. ZYRTEC [Concomitant]
     Active Substance: CETIRIZINE HYDROCHLORIDE
     Dosage: 10 MILLIGRAM, SINGLE
     Route: 048
     Dates: start: 20230512, end: 20230512
  13. DAFALGAN [Concomitant]
     Active Substance: ACETAMINOPHEN
     Indication: Premedication
     Dosage: 1 GRAM, SINGLE
     Route: 048
     Dates: start: 20230406, end: 20230406
  14. DAFALGAN [Concomitant]
     Active Substance: ACETAMINOPHEN
     Dosage: 1 GRAM, SINGLE
     Route: 048
     Dates: start: 20230512, end: 20230512
  15. ACETIC ACID [Concomitant]
     Active Substance: ACETIC ACID
     Indication: Wound infection
     Dosage: 1 APPLICATION, BID
     Route: 061
     Dates: start: 20230321, end: 20230327
  16. ACETIC ACID [Concomitant]
     Active Substance: ACETIC ACID
     Dosage: 1 APPLICATION, BID
     Route: 061
     Dates: start: 20230331, end: 20230420
  17. ALDACTONE [Concomitant]
     Active Substance: SPIRONOLACTONE
     Dosage: 25 MILLIGRAM, QD
     Route: 048
     Dates: start: 20230326, end: 20230424
  18. CHOLECALCIFEROL [Concomitant]
     Active Substance: CHOLECALCIFEROL
     Indication: Prophylaxis
     Dosage: 25000 INTERNATIONAL UNIT, MONTHLY
     Route: 048
     Dates: start: 20230307
  19. DAFALGAN [Concomitant]
     Active Substance: ACETAMINOPHEN
     Indication: Cytokine release syndrome
     Dosage: 1 GRAM, SINGLE
     Route: 048
     Dates: start: 20230324, end: 20230324
  20. FENOTEROL HYDROBROMIDE [Concomitant]
     Active Substance: FENOTEROL HYDROBROMIDE
     Dosage: 1 INHALATION, PRN
     Dates: start: 20230222
  21. SULFAMETHOXAZOLE\TRIMETHOPRIM [Concomitant]
     Active Substance: SULFAMETHOXAZOLE\TRIMETHOPRIM
     Indication: Prophylaxis
     Dosage: 160 MILLIGRAM, QOD
     Route: 048
     Dates: start: 20230308
  22. FOLIC ACID [Concomitant]
     Active Substance: FOLIC ACID
     Indication: Supportive care
     Dosage: 4 MILLIGRAM, QD
     Route: 048
     Dates: start: 20230213, end: 20230505
  23. NILSTAT [NYSTATIN] [Concomitant]
     Indication: Oropharyngeal candidiasis
     Dosage: 1.5 MILLILITER, QID
     Route: 048
     Dates: start: 20230406, end: 20230414
  24. PANTOPRAZOLE [Concomitant]
     Active Substance: PANTOPRAZOLE
     Indication: Prophylaxis
     Dosage: 40 MILLIGRAM, QD
     Route: 048
     Dates: start: 20230207
  25. PIPERACILLIN SODIUM\TAZOBACTAM SODIUM [Concomitant]
     Active Substance: PIPERACILLIN SODIUM\TAZOBACTAM SODIUM
     Indication: Prophylaxis
     Dosage: 4 GRAM, QID
     Route: 042
     Dates: start: 20230325, end: 20230327
  26. PLASMALYTE A [Concomitant]
     Indication: Cytokine release syndrome
     Dosage: 500 MILLILITER, SINGLE
     Route: 042
     Dates: start: 20230324, end: 20230324
  27. PLASMALYTE A [Concomitant]
     Indication: Prophylaxis
     Dosage: 1000 MILLILITER, TWICE
     Route: 042
     Dates: start: 20230324, end: 20230325
  28. PLASMALYTE A [Concomitant]
     Dosage: 1000 MILLILITER, CONTINUOUS
     Route: 042
     Dates: start: 20230330, end: 20230401
  29. SIMVASTATIN [Concomitant]
     Active Substance: SIMVASTATIN
     Dosage: 40 MILLIGRAM, QD
     Route: 048
     Dates: start: 20180912
  30. OLODATEROL HYDROCHLORIDE\TIOTROPIUM BROMIDE MONOHYDRATE [Concomitant]
     Active Substance: OLODATEROL HYDROCHLORIDE\TIOTROPIUM BROMIDE MONOHYDRATE
     Dosage: 2 INHALATION, QD
     Dates: start: 20230222
  31. BISOPROLOL [Concomitant]
     Active Substance: BISOPROLOL
     Dosage: 2.5 MILLIGRAM, QD
     Route: 048
     Dates: start: 20230422, end: 20230424
  32. BISOPROLOL [Concomitant]
     Active Substance: BISOPROLOL
     Dosage: 1.25 MILLIGRAM, QD
     Route: 048
     Dates: start: 20230425, end: 20230615
  33. POVIDONE-IODINE [Concomitant]
     Active Substance: POVIDONE-IODINE
     Indication: Wound infection
     Dosage: 1 APPLICATION, QD
     Route: 061
     Dates: start: 20230421, end: 20230505
  34. ENOXAPARIN SODIUM [Concomitant]
     Active Substance: ENOXAPARIN SODIUM
     Dosage: 60 MILLIGRAM, SINGLE
     Route: 058
     Dates: start: 20230422, end: 20230422
  35. ENOXAPARIN SODIUM [Concomitant]
     Active Substance: ENOXAPARIN SODIUM
     Dosage: 80 MILLIGRAM, QD
     Route: 058
     Dates: start: 20230422, end: 20230426
  36. ENOXAPARIN SODIUM [Concomitant]
     Active Substance: ENOXAPARIN SODIUM
     Dosage: 80 MILLIGRAM, BID
     Route: 058
     Dates: start: 20230427, end: 20230428
  37. FLAMINAL HYDRO [Concomitant]
     Indication: Wound infection
     Dosage: 1 APPLICATION, QD
     Route: 061
     Dates: start: 20230421, end: 20230505
  38. SODIUM CHLORIDE [Concomitant]
     Active Substance: SODIUM CHLORIDE
     Indication: Prophylaxis
     Dosage: 1000 MILLILITER, CONTINUOUS
     Route: 042
     Dates: start: 20230406, end: 20230407
  39. SODIUM CHLORIDE [Concomitant]
     Active Substance: SODIUM CHLORIDE
     Dosage: 500 MILLILITER,CONTINUOUS
     Route: 042
     Dates: start: 20230428, end: 20230428
  40. ASPIRIN [Concomitant]
     Active Substance: ASPIRIN
     Indication: Prophylaxis
     Dosage: 80 DOSAGE FORM (TABLETS), QD
     Route: 048
     Dates: start: 20230323, end: 20230420
  41. INNOHEP [Concomitant]
     Active Substance: TINZAPARIN SODIUM
     Dosage: 14000 E, QD
     Route: 058
     Dates: start: 20230429, end: 20230526
  42. MOVICOL [Concomitant]
     Active Substance: POLYETHYLENE GLYCOL 3350\POTASSIUM CHLORIDE\SODIUM BICARBONATE\SODIUM CHLORIDE
     Indication: Prophylaxis
     Dosage: 1 SACHET, SINGLE
     Route: 048
     Dates: start: 20230429, end: 20230429

REACTIONS (1)
  - Somnolence [Recovered/Resolved]

NARRATIVE: CASE EVENT DATE: 20230420
